FAERS Safety Report 5102511-2 (Version None)
Quarter: 2006Q3

REPORT INFORMATION
  Report Type: 
  Country: None (occurrence: None)
  Receive Date: 20060908
  Receipt Date: 20060817
  Transmission Date: 20061208
  Serious: Yes (Life-Threatening, Other)
  Sender: FDA-Public Use
  Company Number: US200605004104

PATIENT
  Age: 56 Year
  Sex: Female

DRUGS (3)
  1. CYMBALTA [Suspect]
     Indication: NEUROPATHY PERIPHERAL
     Dosage: 60 MG
     Dates: start: 20051020
  2. FOSAMAX [Concomitant]
  3. COUMADIN [Concomitant]

REACTIONS (3)
  - ENDOMETRIAL CANCER RECURRENT [None]
  - OVARIAN CANCER [None]
  - STEVENS-JOHNSON SYNDROME [None]
